FAERS Safety Report 15957303 (Version 2)
Quarter: 2019Q1

REPORT INFORMATION
  Report Type: Spontaneous
  Country: JP (occurrence: JP)
  Receive Date: 20190213
  Receipt Date: 20190306
  Transmission Date: 20190417
  Serious: Yes (Hospitalization)
  Sender: FDA-Public Use
  Company Number: JP-EISAI MEDICAL RESEARCH-EC-2019-051668

PATIENT
  Age: 80 Year
  Sex: Male
  Weight: 56 kg

DRUGS (3)
  1. LENVATINIB [Suspect]
     Active Substance: LENVATINIB
     Route: 048
  2. LENVATINIB [Suspect]
     Active Substance: LENVATINIB
     Indication: HEPATOCELLULAR CARCINOMA
     Route: 048
     Dates: start: 20180326, end: 20180426
  3. LENVATINIB [Suspect]
     Active Substance: LENVATINIB
     Route: 048

REACTIONS (3)
  - Hypothyroidism [Unknown]
  - Bronchitis [Unknown]
  - Hypertension [Unknown]

NARRATIVE: CASE EVENT DATE: 2018
